FAERS Safety Report 25478122 (Version 1)
Quarter: 2025Q2

REPORT INFORMATION
  Report Type: Spontaneous
  Country: US (occurrence: US)
  Receive Date: 20250625
  Receipt Date: 20250625
  Transmission Date: 20250717
  Serious: Yes (Other)
  Sender: AUROBINDO
  Company Number: US-AUROBINDO-AUR-APL-2025-017393

PATIENT
  Age: 62 Year
  Sex: Male

DRUGS (2)
  1. AMIODARONE HYDROCHLORIDE [Suspect]
     Active Substance: AMIODARONE HYDROCHLORIDE
     Indication: Cardiogenic shock
     Route: 042
  2. DABRAFENIB [Concomitant]
     Active Substance: DABRAFENIB
     Indication: Thyroid cancer
     Route: 065

REACTIONS (1)
  - Drug ineffective [Unknown]
